FAERS Safety Report 12325854 (Version 1)
Quarter: 2016Q2

REPORT INFORMATION
  Report Type: Spontaneous
  Country: US (occurrence: US)
  Receive Date: 20160503
  Receipt Date: 20160503
  Transmission Date: 20160815
  Serious: No
  Sender: FDA-Public Use
  Company Number: US-LEO PHARMA-241701

PATIENT
  Age: 63 Year
  Sex: Female

DRUGS (2)
  1. CALCIPOTRIENE OINTMENT 0.005% [Suspect]
     Active Substance: CALCIPOTRIENE
     Indication: PSORIASIS
     Route: 061
  2. DAIVOBET [Concomitant]
     Active Substance: BETAMETHASONE DIPROPIONATE\CALCIPOTRIENE
     Indication: PSORIASIS

REACTIONS (3)
  - Pruritus [Recovered/Resolved]
  - Medication error [Unknown]
  - Hypersensitivity [Recovered/Resolved]
